FAERS Safety Report 21206070 (Version 1)
Quarter: 2022Q3

REPORT INFORMATION
  Report Type: Spontaneous
  Country: TR (occurrence: TR)
  Receive Date: 20220812
  Receipt Date: 20220812
  Transmission Date: 20221026
  Serious: Yes (Hospitalization)
  Sender: FDA-Public Use
  Company Number: TR-Nexus Pharma-000097

PATIENT
  Age: 2 Month
  Sex: Female

DRUGS (2)
  1. COLISTIMETHATE SODIUM [Suspect]
     Active Substance: COLISTIMETHATE SODIUM
     Indication: Acinetobacter infection
     Dosage: DIVIDED INTO TWO EQUAL DOSES
     Route: 042
  2. AMIKACIN [Concomitant]
     Active Substance: AMIKACIN
     Indication: Acinetobacter infection

REACTIONS (1)
  - Bartter^s syndrome [Recovered/Resolved]
